FAERS Safety Report 10028664 (Version 4)
Quarter: 2014Q2

REPORT INFORMATION
  Report Type: Spontaneous
  Country: JP (occurrence: JP)
  Receive Date: 20140321
  Receipt Date: 20140425
  Transmission Date: 20141212
  Serious: No
  Sender: FDA-Public Use
  Company Number: JP-GLAXOSMITHKLINE-B0977187A

PATIENT
  Age: 9 Year
  Sex: Male

DRUGS (4)
  1. RELENZA [Suspect]
     Indication: INFLUENZA
     Dosage: 10MG TWICE PER DAY
     Route: 055
     Dates: start: 20140213, end: 20140217
  2. CARBOCISTEINE [Concomitant]
     Dosage: 250MG THREE TIMES PER DAY
     Route: 048
     Dates: start: 20140213, end: 20140217
  3. HUSCODE [Concomitant]
     Dosage: 1IUAX THREE TIMES PER DAY
     Route: 048
     Dates: start: 20140213, end: 20140217
  4. CALONAL [Concomitant]
     Route: 048
     Dates: start: 20140213, end: 20140217

REACTIONS (1)
  - Alopecia [Unknown]
